FAERS Safety Report 6604546-7 (Version None)
Quarter: 2010Q1

REPORT INFORMATION
  Report Type: 
  Country: None (occurrence: None)
  Receive Date: 20100226
  Receipt Date: 20100212
  Transmission Date: 20100710
  Serious: No
  Sender: FDA-Public Use
  Company Number: A0818147A

PATIENT
  Age: 61 Year
  Sex: Male

DRUGS (4)
  1. LAMICTAL CD [Suspect]
     Dosage: 300MG PER DAY
     Route: 048
  2. AMBIEN [Suspect]
     Indication: INSOMNIA
     Route: 048
  3. ASPIRIN [Concomitant]
  4. VITAMIN D + CALCIUM [Concomitant]

REACTIONS (1)
  - INSOMNIA [None]
